FAERS Safety Report 6820241-3 (Version None)
Quarter: 2010Q3

REPORT INFORMATION
  Report Type: 
  Country: None (occurrence: None)
  Receive Date: 20100707
  Receipt Date: 20100629
  Transmission Date: 20110219
  Serious: Yes (Other)
  Sender: FDA-Public Use
  Company Number: US-PFIZER INC-2010081285

PATIENT
  Sex: Male
  Weight: 101 kg

DRUGS (12)
  1. LIPITOR [Suspect]
     Indication: BLOOD CHOLESTEROL INCREASED
     Dosage: 40 MG, DAILY
     Route: 048
     Dates: start: 20080301, end: 20100628
  2. CELEBREX [Suspect]
     Indication: BACK PAIN
     Dosage: UNK
     Route: 048
     Dates: start: 20010101, end: 20030101
  3. CELEBREX [Suspect]
     Indication: NECK PAIN
  4. RELAFEN [Suspect]
     Indication: BACK PAIN
     Dosage: UNK
     Route: 048
  5. RELAFEN [Suspect]
     Indication: NECK PAIN
  6. ETODOLAC [Suspect]
     Indication: BACK PAIN
     Dosage: UNK
     Route: 048
  7. ETODOLAC [Suspect]
     Indication: NECK PAIN
  8. DAYPRO [Concomitant]
     Indication: BACK PAIN
     Dosage: 1200 MG, 1X/DAY
     Route: 048
  9. DAYPRO [Concomitant]
     Indication: NECK PAIN
  10. MULTI-VITAMINS [Concomitant]
     Dosage: UNK
  11. VITAMIN D [Concomitant]
     Dosage: UNK
  12. CALCIUM [Concomitant]
     Dosage: UNK

REACTIONS (13)
  - BODY TEMPERATURE INCREASED [None]
  - DIABETES MELLITUS [None]
  - DRUG INEFFECTIVE [None]
  - FLATULENCE [None]
  - GASTRITIS [None]
  - GASTROOESOPHAGEAL REFLUX DISEASE [None]
  - HIGH DENSITY LIPOPROTEIN DECREASED [None]
  - MALAISE [None]
  - MYALGIA [None]
  - NAUSEA [None]
  - PROSTATE CANCER [None]
  - ULCER [None]
  - WHITE BLOOD CELL COUNT INCREASED [None]
